FAERS Safety Report 14199377 (Version 1)
Quarter: 2017Q4

REPORT INFORMATION
  Report Type: Spontaneous
  Country: US (occurrence: None)
  Receive Date: 20171116
  Receipt Date: 20171116
  Transmission Date: 20180321
  Serious: Yes (Other)
  Sender: FDA-Public Use
  Company Number: None

PATIENT
  Sex: Male
  Weight: 113.85 kg

DRUGS (1)
  1. TOPIRAMATE 100MG ONE TID [Suspect]
     Active Substance: TOPIRAMATE
     Indication: SEIZURE
     Dosage: 100MG ONE TID  AUGUST @ UT

REACTIONS (2)
  - Vomiting [None]
  - Haematemesis [None]
